FAERS Safety Report 15468445 (Version 1)
Quarter: 2018Q4

REPORT INFORMATION
  Report Type: Spontaneous
  Country: US (occurrence: US)
  Receive Date: 20181001
  Receipt Date: 20181001
  Transmission Date: 20190204
  Serious: No
  Sender: FDA-Public Use
  Company Number: None

PATIENT
  Age: 61 Year
  Sex: Female
  Weight: 71.67 kg

DRUGS (2)
  1. BENLYSTA [Suspect]
     Active Substance: BELIMUMAB
     Indication: SYSTEMIC LUPUS ERYTHEMATOSUS
     Dosage: OVER Q HR ON DAY 1, DAY 14 DAILY DAY 26MASDIRECTED
     Route: 042
     Dates: start: 201603
  2. BENLYSTA [Suspect]
     Active Substance: BELIMUMAB
     Indication: SYSTEMIC LUPUS ERYTHEMATOSUS
     Dosage: OVER Q HR ON DAY 1, DAY 14 DAILY DAY 26MASDIRECTED
     Route: 042
     Dates: start: 201709

REACTIONS (1)
  - Adverse drug reaction [None]
